FAERS Safety Report 9283135 (Version 1)
Quarter: 2013Q2

REPORT INFORMATION
  Report Type: Spontaneous
  Country: US (occurrence: US)
  Receive Date: 20130510
  Receipt Date: 20130510
  Transmission Date: 20140414
  Serious: Yes (Hospitalization, Other)
  Sender: FDA-Public Use
  Company Number: US-BAYER-2013-054996

PATIENT
  Age: 71 Year
  Sex: Male

DRUGS (1)
  1. PRECOSE [Suspect]
     Indication: TYPE 2 DIABETES MELLITUS
     Dosage: 100MG TABLET PER 15/20MG OF CARBOHYDRATES
     Route: 048

REACTIONS (3)
  - Weight decreased [None]
  - Hospitalisation [None]
  - Blood glucose increased [None]
